FAERS Safety Report 6424611-7 (Version None)
Quarter: 2009Q4

REPORT INFORMATION
  Report Type: 
  Country: None (occurrence: None)
  Receive Date: 20091103
  Receipt Date: 20091023
  Transmission Date: 20100525
  Serious: Yes (Disabling, Other)
  Sender: FDA-Public Use
  Company Number: PHEH2009US11673

PATIENT
  Sex: Male

DRUGS (5)
  1. EXJADE [Suspect]
     Dosage: 3125 MG, QD
     Route: 048
     Dates: start: 20070420, end: 20090831
  2. HYDROXYUREA [Concomitant]
     Dosage: UNK
  3. OXYCODONE [Concomitant]
     Dosage: UNK
  4. AMITRIPTYLINE [Concomitant]
     Dosage: UNK
  5. DESFERAL [Concomitant]

REACTIONS (4)
  - ENTEROCUTANEOUS FISTULA [None]
  - ILEOSTOMY [None]
  - UMBILICAL HERNIA REPAIR [None]
  - WOUND DRAINAGE [None]
